FAERS Safety Report 9150081 (Version 1)
Quarter: 2013Q1

REPORT INFORMATION
  Report Type: Spontaneous
  Country: US (occurrence: US)
  Receive Date: 20130308
  Receipt Date: 20130308
  Transmission Date: 20140127
  Serious: No
  Sender: FDA-Public Use
  Company Number: US-PFIZER INC-2013078746

PATIENT
  Age: 15 Year
  Sex: Female
  Weight: 43.08 kg

DRUGS (1)
  1. GENOTROPIN [Suspect]
     Indication: GROWTH HORMONE DEFICIENCY
     Dosage: 2.2 MG, 1X/DAY, AT NIGHT
     Dates: start: 20130303

REACTIONS (2)
  - Vomiting [Unknown]
  - Nausea [Unknown]
